FAERS Safety Report 6030114-4 (Version None)
Quarter: 2009Q1

REPORT INFORMATION
  Report Type: 
  Country: None (occurrence: None)
  Receive Date: 20090106
  Receipt Date: 20090106
  Transmission Date: 20090719
  Serious: Yes (Hospitalization)
  Sender: FDA-Public Use
  Company Number: None

PATIENT
  Sex: Male
  Weight: 74.9 kg

DRUGS (23)
  1. CISPLATIN [Suspect]
     Indication: OESOPHAGEAL CARCINOMA
     Dosage: 19.5MG IN 1 L NS Q12 HRS X BAGS IV
     Route: 042
     Dates: start: 20081208, end: 20081212
  2. FLUOROURACIL [Suspect]
     Indication: OESOPHAGEAL CARCINOMA
     Dosage: 965MG IN 1L D5 .5NS Q12 HRS X 8 BAGS IV
     Route: 042
     Dates: start: 20081208, end: 20081212
  3. PROVENTIL [Concomitant]
  4. TENORMIN [Concomitant]
  5. LIPITOR [Concomitant]
  6. ADVAIR DISKUS 100/50 [Concomitant]
  7. ATIVAN [Concomitant]
  8. MEGACE [Concomitant]
  9. REMERON [Concomitant]
  10. NEXIUM [Concomitant]
  11. COMPAZINE [Concomitant]
  12. CARAFATE [Concomitant]
  13. SALT AND SODA [Concomitant]
  14. DECADRON [Concomitant]
  15. HYDRALAZINE HCL [Concomitant]
  16. ZOFRAN [Concomitant]
  17. LOVENOX [Concomitant]
  18. REGULAR INSULIN [Concomitant]
  19. MORPHINE [Concomitant]
  20. PRILOSEC [Concomitant]
  21. OXYCODONE [Concomitant]
  22. ZOSYN [Concomitant]
  23. VANCOMYCIN HYDROCHLORIDE [Concomitant]

REACTIONS (15)
  - ABDOMINAL PAIN [None]
  - ANOREXIA [None]
  - ASTHENIA [None]
  - CATHETER RELATED COMPLICATION [None]
  - CULTURE WOUND POSITIVE [None]
  - DEHYDRATION [None]
  - DYSPNOEA [None]
  - GASTROINTESTINAL STOMA COMPLICATION [None]
  - HYPOPHAGIA [None]
  - NAUSEA [None]
  - PAIN OF SKIN [None]
  - POST PROCEDURAL COMPLICATION [None]
  - POST PROCEDURAL INFECTION [None]
  - PULMONARY EMBOLISM [None]
  - VOMITING [None]
